FAERS Safety Report 7869038 (Version 3)
Quarter: 2014Q1

REPORT INFORMATION
  Report Type: Report from Study
  Country: FI (occurrence: FI)
  Receive Date: 20110324
  Receipt Date: 20140106
  Transmission Date: 20141002
  Serious: Yes (Death)
  Sender: FDA-Public Use
  Company Number: FI-CELGENEUS-055-21880-11031939

PATIENT
  Age: 85 Year
  Sex: Male
  Weight: 62 kg

DRUGS (15)
  1. REVLIMID [Suspect]
     Indication: MANTLE CELL LYMPHOMA
     Dosage: 15 MILLIGRAM
     Route: 048
     Dates: start: 20100930, end: 20101001
  2. REVLIMID [Suspect]
     Dosage: 10 MILLIGRAM
     Route: 048
     Dates: start: 20101104, end: 20101124
  3. REVLIMID [Suspect]
     Dosage: 5 MILLIGRAM
     Route: 048
     Dates: end: 20110115
  4. BENDAMUSTINE [Suspect]
     Indication: MANTLE CELL LYMPHOMA
     Dosage: 78 MILLIGRAM
     Route: 041
     Dates: start: 20101104, end: 20101105
  5. BENDAMUSTINE [Suspect]
     Dosage: 147 MILLIGRAM
     Route: 041
     Dates: start: 20110105, end: 20110106
  6. RITUXIMAB [Suspect]
     Indication: MANTLE CELL LYMPHOMA
     Dosage: 700 MILLIGRAM
     Route: 041
     Dates: start: 20100930, end: 20110115
  7. DIUREX [Concomitant]
     Indication: HYPERTENSION
     Route: 065
  8. TROMBYL [Concomitant]
     Indication: PERIPHERAL VASCULAR DISORDER
     Route: 065
  9. POTASSIUM [Concomitant]
     Indication: HYPERTENSION
     Route: 065
  10. GLIMEPIRIDE [Concomitant]
     Indication: DIABETES MELLITUS
     Route: 065
     Dates: start: 2006
  11. TAMSULOSIN [Concomitant]
     Indication: DIABETES MELLITUS
     Dosage: .4 MILLIGRAM
     Route: 065
  12. NEULASTA [Concomitant]
     Indication: COLONY STIMULATING FACTOR PROPHYLAXIS
     Dosage: 6 MILLIGRAM
     Route: 058
     Dates: start: 20101004, end: 20110106
  13. NEUPOGEN [Concomitant]
     Indication: PRODUCT USED FOR UNKNOWN INDICATION
     Route: 065
  14. ALLOPURINOL [Concomitant]
     Indication: PROPHYLAXIS
     Dosage: 300 MILLIGRAM
     Route: 065
     Dates: start: 20100924
  15. BACTRIM [Concomitant]
     Indication: PRODUCT USED FOR UNKNOWN INDICATION
     Route: 065
     Dates: start: 20100924

REACTIONS (2)
  - Neutropenic infection [Fatal]
  - Pneumonia [Fatal]
